FAERS Safety Report 6652889-3 (Version None)
Quarter: 2010Q1

REPORT INFORMATION
  Report Type: 
  Country: None (occurrence: None)
  Receive Date: 20100326
  Receipt Date: 20100324
  Transmission Date: 20100710
  Serious: Yes (Life-Threatening, Hospitalization)
  Sender: FDA-Public Use
  Company Number: AU-B.I. PHARMACEUTICALS,INC./RIDGEFIELD-2010-AU-00096AU

PATIENT
  Sex: Female

DRUGS (7)
  1. MICARDIS [Suspect]
     Indication: HYPERTENSION
     Dosage: 80 MG
     Route: 048
     Dates: start: 20070925, end: 20081113
  2. SPIRIVA [Suspect]
     Indication: CHRONIC OBSTRUCTIVE PULMONARY DISEASE
  3. LEVOTHYROXINE SODIUM [Concomitant]
     Indication: HYPOTHYROIDISM
  4. ZANIDIP [Concomitant]
     Indication: HYPERTENSION
  5. LIPITOR [Concomitant]
     Indication: DYSLIPIDAEMIA
  6. FOSAMAX [Concomitant]
     Indication: OSTEOPOROSIS
  7. SERETIDE [Concomitant]

REACTIONS (1)
  - HYPERKALAEMIA [None]
